FAERS Safety Report 5115717-3 (Version None)
Quarter: 2006Q3

REPORT INFORMATION
  Report Type: 
  Country: None (occurrence: None)
  Receive Date: 20060927
  Receipt Date: 20051021
  Transmission Date: 20061208
  Serious: Yes (Other)
  Sender: FDA-Public Use
  Company Number: US-GLAXOSMITHKLINE-A0579165A

PATIENT
  Age: 9 Year
  Sex: Male
  Weight: 27.7 kg

DRUGS (2)
  1. LAMICTAL [Suspect]
     Dosage: 25MG TWICE PER DAY
     Route: 048
     Dates: start: 20050926, end: 20051018
  2. TRILEPTAL [Concomitant]
     Dosage: 300MG TWICE PER DAY

REACTIONS (2)
  - ERYTHEMA [None]
  - RASH [None]
